FAERS Safety Report 11686086 (Version 5)
Quarter: 2016Q1

REPORT INFORMATION
  Report Type: Spontaneous
  Country: AR (occurrence: AR)
  Receive Date: 20151030
  Receipt Date: 20160125
  Transmission Date: 20160525
  Serious: Yes (Hospitalization)
  Sender: FDA-Public Use
  Company Number: AR-PFIZER INC-2015353674

PATIENT
  Age: 57 Year
  Sex: Male

DRUGS (6)
  1. RIFADIN [Concomitant]
     Active Substance: RIFAMPIN
     Dosage: UNK
     Dates: start: 20150922
  2. TRAMADOL. [Concomitant]
     Active Substance: TRAMADOL
     Dosage: UNK
  3. AMPLIACTIL [Concomitant]
     Dosage: UNK
     Dates: start: 20150922
  4. OMEPRAZOL [Concomitant]
     Active Substance: OMEPRAZOLE
     Dosage: UNK
  5. SUTENT [Suspect]
     Active Substance: SUNITINIB MALATE
     Indication: METASTATIC RENAL CELL CARCINOMA
     Dosage: 50 MG, CYCLIC (4/2 SCHEME)
     Dates: start: 20150723, end: 20150922
  6. PREGABALINA [Concomitant]
     Active Substance: PREGABALIN
     Dosage: UNK

REACTIONS (7)
  - Bacterial infection [Recovering/Resolving]
  - Urinary tract infection [Recovering/Resolving]
  - Decubitus ulcer [Recovering/Resolving]
  - Scab [Recovering/Resolving]
  - Pyrexia [Recovered/Resolved]
  - Hiccups [Recovered/Resolved]
  - Nephrolithiasis [Recovering/Resolving]

NARRATIVE: CASE EVENT DATE: 2015
